FAERS Safety Report 6454158-3 (Version None)
Quarter: 2009Q4

REPORT INFORMATION
  Report Type: 
  Country: None (occurrence: None)
  Receive Date: 20091124
  Receipt Date: 20091113
  Transmission Date: 20100525
  Serious: Yes (Hospitalization, Other)
  Sender: FDA-Public Use
  Company Number: DE-WYE-H11901909

PATIENT
  Age: 65 Year
  Sex: Male
  Weight: 78 kg

DRUGS (6)
  1. PANTOZOL [Suspect]
     Route: 042
     Dates: start: 20090914, end: 20090914
  2. PANTOZOL [Suspect]
     Route: 042
     Dates: start: 20090915, end: 20090921
  3. KONAKION [Suspect]
     Route: 042
     Dates: start: 20090915, end: 20090915
  4. KONAKION [Suspect]
     Route: 042
     Dates: start: 20090928, end: 20090928
  5. NOVAMINSULFON-RATIOPHARM [Suspect]
     Route: 042
     Dates: start: 20090914, end: 20090919
  6. MEPERIDINE HCL [Suspect]
     Route: 042
     Dates: start: 20090914, end: 20090919

REACTIONS (3)
  - HEPATITIS ACUTE [None]
  - PANCREATITIS [None]
  - STAPHYLOCOCCAL SEPSIS [None]
